FAERS Safety Report 13719798 (Version 1)
Quarter: 2017Q3

REPORT INFORMATION
  Report Type: Not Available
  Country: US (occurrence: US)
  Receive Date: 20170705
  Receipt Date: 20170705
  Transmission Date: 20171127
  Serious: Yes (Other)
  Sender: FDA-Public Use
  Company Number: US-ANIPHARMA-2017-US-007494

PATIENT
  Age: 69 Year
  Sex: Male

DRUGS (3)
  1. AZATHIOPRINE. [Suspect]
     Active Substance: AZATHIOPRINE
  2. PYRIDOSTIGMINE (NON-SPECIFIC) [Suspect]
     Active Substance: PYRIDOSTIGMINE
  3. PREDNISONE. [Suspect]
     Active Substance: PREDNISONE

REACTIONS (3)
  - Lymphopenia [Unknown]
  - Intestinal perforation [Unknown]
  - Infection [Unknown]
